FAERS Safety Report 12310411 (Version 1)
Quarter: 2016Q2

REPORT INFORMATION
  Report Type: Spontaneous
  Country: IE (occurrence: IE)
  Receive Date: 20160427
  Receipt Date: 20160427
  Transmission Date: 20160815
  Serious: Yes (Death)
  Sender: FDA-Public Use
  Company Number: IE-JNJFOC-20160421018

PATIENT
  Age: 6 Decade
  Sex: Female

DRUGS (1)
  1. XEPLION [Suspect]
     Active Substance: PALIPERIDONE PALMITATE
     Indication: PRODUCT USED FOR UNKNOWN INDICATION
     Route: 030
     Dates: start: 201510, end: 201512

REACTIONS (2)
  - White blood cell count decreased [Unknown]
  - Influenza [Fatal]
